FAERS Safety Report 22003425 (Version 3)
Quarter: 2023Q2

REPORT INFORMATION
  Report Type: Spontaneous
  Country: US (occurrence: US)
  Receive Date: 20230217
  Receipt Date: 20230516
  Transmission Date: 20230721
  Serious: Yes (Hospitalization)
  Sender: FDA-Public Use
  Company Number: US-JNJFOC-20230233303

PATIENT
  Age: 55 Year
  Sex: Male

DRUGS (5)
  1. XARELTO [Suspect]
     Active Substance: RIVAROXABAN
     Indication: Cerebellar infarction
     Dosage: FOR 12 DAYS
     Route: 048
     Dates: start: 20230330
  2. XARELTO [Suspect]
     Active Substance: RIVAROXABAN
     Indication: Vertebrobasilar artery dissection
     Route: 048
     Dates: start: 20230202
  3. ASPIRIN [Concomitant]
     Active Substance: ASPIRIN
     Indication: Vertebrobasilar artery dissection
     Route: 048
     Dates: start: 20230201
  4. MECLIZINE [Concomitant]
     Active Substance: MECLIZINE HYDROCHLORIDE
     Indication: Cerebellar infarction
     Dosage: AS NECESSARY
     Dates: start: 20230131
  5. MECLIZINE [Concomitant]
     Active Substance: MECLIZINE HYDROCHLORIDE
     Indication: Dizziness

REACTIONS (2)
  - Vomiting [Recovering/Resolving]
  - Off label use [Unknown]
